FAERS Safety Report 6218250-0 (Version None)
Quarter: 2009Q2

REPORT INFORMATION
  Report Type: 
  Country: None (occurrence: None)
  Receive Date: 20090608
  Receipt Date: 20090603
  Transmission Date: 20091009
  Serious: Yes (Other)
  Sender: FDA-Public Use
  Company Number: AU-BRISTOL-MYERS SQUIBB COMPANY-14618581

PATIENT
  Age: 72 Year
  Sex: Female

DRUGS (9)
  1. AVAPRO [Suspect]
     Indication: HYPERTENSION
     Dosage: 1 DF = IRBESARTAN 300MG+HYDROCHLOROTHIAZIDE 12.5MG)
     Dates: start: 19990101
  2. PLAVIX [Suspect]
     Indication: CEREBROVASCULAR ACCIDENT
     Dates: start: 20050101
  3. ARAVA [Suspect]
     Indication: RHEUMATOID ARTHRITIS
     Dates: start: 20051115, end: 20090409
  4. NORVASC [Concomitant]
  5. MOBIC [Concomitant]
  6. ACETAMINOPHEN [Concomitant]
  7. TRAMADOL HCL [Concomitant]
  8. NEXIUM [Concomitant]
  9. ZOCOR [Concomitant]

REACTIONS (1)
  - DUODENAL ULCER HAEMORRHAGE [None]
